FAERS Safety Report 7019136-4 (Version None)
Quarter: 2010Q3

REPORT INFORMATION
  Report Type: 
  Country: None (occurrence: None)
  Receive Date: 20100928
  Receipt Date: 20100924
  Transmission Date: 20110219
  Serious: Yes (Hospitalization)
  Sender: FDA-Public Use
  Company Number: Z0005631A

PATIENT
  Age: 64 Year
  Sex: Male
  Weight: 117.5 kg

DRUGS (8)
  1. PAZOPANIB [Suspect]
     Indication: RENAL CELL CARCINOMA
     Route: 048
     Dates: start: 20100223
  2. AMLODIPINE [Concomitant]
     Indication: HYPERTENSION
     Dosage: 10MG PER DAY
     Route: 048
     Dates: start: 20100908
  3. DALTEPARIN SODIUM [Concomitant]
     Indication: EMBOLISM VENOUS
     Dosage: 5000UNIT PER DAY
     Route: 058
     Dates: start: 20100908, end: 20100909
  4. LEVOTHYROXINE SODIUM [Concomitant]
     Indication: HYPOTHYROIDISM
     Dosage: 50MCG PER DAY
     Route: 048
     Dates: start: 20100908
  5. MAGNESIUM SULFATE [Concomitant]
     Indication: SUPPLEMENTATION THERAPY
     Dosage: 3G SINGLE DOSE
     Route: 042
     Dates: start: 20100910, end: 20100910
  6. ZOLPIDEM [Concomitant]
     Indication: INSOMNIA
     Dosage: 5MG AT NIGHT
     Route: 048
     Dates: start: 20100908
  7. CALCIUM GLUCONATE [Concomitant]
     Indication: SUPPLEMENTATION THERAPY
     Dosage: 2G SINGLE DOSE
     Route: 042
     Dates: start: 20100910, end: 20100910
  8. LOPERAMIDE [Concomitant]
     Indication: DIARRHOEA
     Dosage: 2MG FOUR TIMES PER DAY
     Route: 048
     Dates: start: 20100908

REACTIONS (2)
  - DIARRHOEA [None]
  - RENAL FAILURE ACUTE [None]
